FAERS Safety Report 15368604 (Version 3)
Quarter: 2018Q4

REPORT INFORMATION
  Report Type: Spontaneous
  Country: BE (occurrence: BE)
  Receive Date: 20180911
  Receipt Date: 20181222
  Transmission Date: 20190204
  Serious: Yes (Other)
  Sender: FDA-Public Use
  Company Number: BE-009507513-1809BEL002187

PATIENT
  Sex: Male

DRUGS (2)
  1. AVELOX [Concomitant]
     Active Substance: MOXIFLOXACIN HYDROCHLORIDE
     Dosage: UNK
     Dates: start: 20180830
  2. AERINAZE [Suspect]
     Active Substance: DESLORATADINE\PSEUDOEPHEDRINE
     Dosage: UNK
     Route: 048
     Dates: start: 20180830, end: 201809

REACTIONS (1)
  - Thirst [Unknown]

NARRATIVE: CASE EVENT DATE: 20180830
